FAERS Safety Report 4938766-4 (Version None)
Quarter: 2006Q1

REPORT INFORMATION
  Report Type: 
  Country: None (occurrence: None)
  Receive Date: 20060309
  Receipt Date: 20050919
  Transmission Date: 20060701
  Serious: Yes (Hospitalization)
  Sender: FDA-Public Use
  Company Number: IT-ABBOTT-05P-083-0311502-00

PATIENT
  Sex: Female
  Weight: 70 kg

DRUGS (20)
  1. HUMIRA [Suspect]
     Indication: RHEUMATOID ARTHRITIS
     Route: 058
     Dates: start: 20050610, end: 20050826
  2. HUMIRA [Suspect]
     Route: 058
     Dates: start: 20050921
  3. RIFAMPICINA [Concomitant]
     Indication: TUBERCULIN TEST POSITIVE
     Dates: start: 20050516
  4. LEFLUNOMIDE [Concomitant]
     Indication: RHEUMATOID ARTHRITIS
     Dates: start: 20041119, end: 20050808
  5. SPIRIVA [Concomitant]
     Indication: BRONCHITIS CHRONIC
     Dates: start: 20050501, end: 20050915
  6. ALIFLUS [Concomitant]
     Indication: BRONCHITIS CHRONIC
     Dates: start: 20050501, end: 20050915
  7. BENADON [Concomitant]
     Indication: TUBERCULIN TEST POSITIVE
     Dates: start: 20050501
  8. AMBROXOL HYDROCHLORIDE [Concomitant]
     Indication: COUGH
     Dates: start: 20050801
  9. METOCAL D3 [Concomitant]
     Indication: OSTEOPOROSIS
  10. ADRONAT 70 [Concomitant]
     Indication: OSTEOPOROSIS
  11. OXITROPIUM BROMIDE [Concomitant]
     Indication: BRONCHITIS CHRONIC
     Dates: start: 20050915
  12. SERETIDE [Concomitant]
     Indication: BRONCHITIS CHRONIC
     Dates: start: 20050915
  13. O2 THERAPY [Concomitant]
     Indication: DYSPNOEA
     Dosage: 2 L/MIN
     Dates: start: 20050912
  14. DILTIAZEM HYDROCHLORIDE [Concomitant]
     Indication: HYPERTENSION
  15. PHENYLPROPANOLAMINE HYDROCHLORIDE [Concomitant]
     Indication: ANXIETY
  16. CLOMIPRAMINE HYDROCHLORIDE [Concomitant]
     Indication: ANXIETY
  17. CREON [Concomitant]
     Indication: DIARRHOEA
  18. OMEPRAZOLE [Concomitant]
     Indication: PROPHYLAXIS AGAINST GASTROINTESTINAL ULCER
  19. NYSTATIN [Concomitant]
     Indication: PROPHYLAXIS
     Dates: start: 20050901
  20. NYSTATIN [Concomitant]
     Indication: ORAL CANDIDIASIS

REACTIONS (1)
  - BRONCHITIS CHRONIC [None]
